FAERS Safety Report 6925906-0 (Version None)
Quarter: 2010Q3

REPORT INFORMATION
  Report Type: 
  Country: None (occurrence: None)
  Receive Date: 20100813
  Receipt Date: 20100813
  Transmission Date: 20110219
  Serious: Yes (Hospitalization)
  Sender: FDA-Public Use
  Company Number: None

PATIENT
  Age: 73 Year
  Sex: Male
  Weight: 95.93 kg

DRUGS (1)
  1. INFLIXIMAB [Suspect]
     Indication: COLITIS ULCERATIVE
     Dosage: 485 MG ONCE IV
     Route: 042
     Dates: start: 20100723, end: 20100724

REACTIONS (8)
  - ARTHRALGIA [None]
  - BACK PAIN [None]
  - BRUXISM [None]
  - ERYTHEMA [None]
  - GRIMACING [None]
  - INFUSION RELATED REACTION [None]
  - PAIN IN EXTREMITY [None]
  - RESTLESSNESS [None]
